FAERS Safety Report 11062168 (Version 1)
Quarter: 2015Q2

REPORT INFORMATION
  Report Type: Spontaneous
  Country: US (occurrence: US)
  Receive Date: 20150424
  Receipt Date: 20150424
  Transmission Date: 20150821
  Serious: Yes (Other)
  Sender: FDA-Public Use
  Company Number: US-SA-2015SA050237

PATIENT
  Age: 27 Year
  Sex: Male

DRUGS (7)
  1. FABRAZYME [Suspect]
     Active Substance: AGALSIDASE BETA
     Indication: FABRY^S DISEASE
     Route: 041
     Dates: start: 2012, end: 20150326
  2. BENADRYL [Concomitant]
     Active Substance: DIPHENHYDRAMINE HYDROCHLORIDE
     Indication: PREMEDICATION
     Dosage: STRENGTH: 50 MG; GIVEN 30 MINS PRIOR TO INFUSION
     Route: 048
  3. ZANTAC [Concomitant]
     Active Substance: RANITIDINE HYDROCHLORIDE
     Indication: PREMEDICATION
     Dosage: GIVEN 30 MINS PRIOR TO INFUSION; STRENGTH: 75 MG
  4. NEURONTIN [Concomitant]
     Active Substance: GABAPENTIN
  5. FABRAZYME [Suspect]
     Active Substance: AGALSIDASE BETA
     Indication: FABRY^S DISEASE
     Route: 041
     Dates: start: 2012, end: 20150326
  6. NORMAL SALINE [Concomitant]
     Active Substance: SODIUM CHLORIDE
     Indication: PREMEDICATION
     Dosage: GIVEN 30 MINS PRIOR TO INFUSION DOSE:500 CUBIC CENTIMETER(S)
     Route: 040
     Dates: start: 20150326
  7. NORMAL SALINE [Concomitant]
     Active Substance: SODIUM CHLORIDE
     Indication: PREMEDICATION
     Dosage: GIVEN 30 MINS PRIOR TO INFUSION DOSE:1000 CUBIC CENTIMETER(S)
     Route: 040

REACTIONS (3)
  - Unevaluable event [Unknown]
  - Cardiac flutter [Recovered/Resolved]
  - Burning sensation [Unknown]
